FAERS Safety Report 25707954 (Version 2)
Quarter: 2025Q3

REPORT INFORMATION
  Report Type: Spontaneous
  Country: CO (occurrence: CO)
  Receive Date: 20250820
  Receipt Date: 20250902
  Transmission Date: 20251021
  Serious: Yes (Hospitalization)
  Sender: BIOMARIN
  Company Number: CO-BIOMARINAP-CO-2025-168217

PATIENT
  Age: 14 Year
  Sex: Female
  Weight: 29 kg

DRUGS (1)
  1. VIMIZIM [Suspect]
     Active Substance: ELOSULFASE ALFA
     Indication: Mucopolysaccharidosis IV
     Dosage: 59 MILLIGRAM, QW
     Dates: start: 20160514

REACTIONS (2)
  - Internal fixation of fracture [Recovering/Resolving]
  - Aspiration bone marrow [Unknown]

NARRATIVE: CASE EVENT DATE: 20250815
